FAERS Safety Report 23853471 (Version 2)
Quarter: 2024Q3

REPORT INFORMATION
  Report Type: Report from Study
  Country: GB (occurrence: GB)
  Receive Date: 20240514
  Receipt Date: 20240705
  Transmission Date: 20241017
  Serious: No
  Sender: SANDOZ
  Company Number: GB-SANDOZ-SDZ2023GB019762

PATIENT
  Sex: Female

DRUGS (1)
  1. HYRIMOZ [Suspect]
     Active Substance: ADALIMUMAB-ADAZ
     Indication: Hidradenitis
     Dosage: 40 MG, QW
     Route: 058
     Dates: start: 20230825

REACTIONS (4)
  - Injection site discolouration [Unknown]
  - Seborrhoea [Unknown]
  - Injection site bruising [Unknown]
  - Injection site pain [Unknown]
